FAERS Safety Report 5702495-X (Version None)
Quarter: 2008Q2

REPORT INFORMATION
  Report Type: 
  Country: None (occurrence: None)
  Receive Date: 20080411
  Receipt Date: 20080401
  Transmission Date: 20081010
  Serious: Yes (Other)
  Sender: FDA-Public Use
  Company Number: US-JNJFOC-20080401048

PATIENT
  Sex: Male
  Weight: 111.13 kg

DRUGS (6)
  1. NIZORAL [Suspect]
     Indication: DRUG USE FOR UNKNOWN INDICATION
     Route: 048
  2. CRESTOR [Concomitant]
     Indication: BLOOD CHOLESTEROL
     Route: 048
  3. LASIX [Concomitant]
     Route: 048
  4. ASPIRIN [Concomitant]
     Indication: CARDIAC DISORDER
     Route: 048
  5. HYDROCORTISONE [Concomitant]
     Route: 048
  6. LIPITOR [Concomitant]
     Indication: BLOOD CHOLESTEROL
     Route: 048

REACTIONS (2)
  - BLOOD CREATININE INCREASED [None]
  - PROTEIN URINE PRESENT [None]
